FAERS Safety Report 6841709-X (Version None)
Quarter: 2010Q3

REPORT INFORMATION
  Report Type: 
  Country: None (occurrence: None)
  Receive Date: 20100714
  Receipt Date: 20070713
  Transmission Date: 20110219
  Serious: No
  Sender: FDA-Public Use
  Company Number: US-PFIZER INC-2007059347

PATIENT
  Sex: Male
  Weight: 83.9 kg

DRUGS (6)
  1. CHANTIX [Suspect]
     Indication: SMOKING CESSATION THERAPY
     Dates: start: 20070711
  2. GABAPENTIN [Concomitant]
  3. DICLOFENAC SODIUM [Concomitant]
  4. TRAMADOL [Concomitant]
  5. ALL OTHER THERAPEUTIC PRODUCTS [Concomitant]
  6. DRUG, UNSPECIFIED [Concomitant]

REACTIONS (1)
  - RASH [None]
